FAERS Safety Report 6061874-4 (Version None)
Quarter: 2009Q1

REPORT INFORMATION
  Report Type: 
  Country: None (occurrence: None)
  Receive Date: 20090202
  Receipt Date: 20090120
  Transmission Date: 20090719
  Serious: Yes (Hospitalization)
  Sender: FDA-Public Use
  Company Number: PHHY2009DE02539

PATIENT
  Sex: Female

DRUGS (8)
  1. LEPONEX [Interacting]
     Indication: SCHIZOPHRENIA
     Dosage: CHANGING DOSE
     Route: 048
     Dates: start: 19930101, end: 20060901
  2. LEPONEX [Interacting]
     Dosage: 900 MG DAILY
     Route: 048
     Dates: start: 20061001, end: 20061122
  3. LEPONEX [Interacting]
     Dosage: 400 MG DAILY
     Route: 048
     Dates: start: 20061123
  4. RISPERDAL [Interacting]
     Indication: SCHIZOPHRENIA
     Dosage: 1 MG DAILY
     Route: 048
     Dates: start: 20061001, end: 20061122
  5. ABILIFY [Suspect]
     Indication: SCHIZOPHRENIA
     Dosage: 10 MG DAILY
     Route: 048
     Dates: start: 20061001, end: 20061122
  6. CYMBALTA [Suspect]
     Indication: SCHIZOPHRENIA
     Dosage: 30 MG DAILY
     Dates: start: 20061001, end: 20061122
  7. DOXEPIN HCL [Suspect]
     Indication: SCHIZOPHRENIA
     Dosage: 50 MG DAILY
     Route: 048
     Dates: start: 20061001, end: 20061122
  8. GASTROZEPIN [Concomitant]
     Dosage: 50 MG DAILY
     Route: 048
     Dates: start: 20061001, end: 20061122

REACTIONS (11)
  - BLOOD CREATINE PHOSPHOKINASE INCREASED [None]
  - BLOOD CREATINE PHOSPHOKINASE MB INCREASED [None]
  - C-REACTIVE PROTEIN INCREASED [None]
  - DRUG INTERACTION [None]
  - GRAND MAL CONVULSION [None]
  - HALLUCINATION [None]
  - HYPONATRAEMIA [None]
  - INFECTION [None]
  - PARANOIA [None]
  - SOMNOLENCE [None]
  - WHITE BLOOD CELL COUNT INCREASED [None]
